FAERS Safety Report 23455299 (Version 2)
Quarter: 2024Q1

REPORT INFORMATION
  Report Type: Spontaneous
  Country: JP (occurrence: JP)
  Receive Date: 20240130
  Receipt Date: 20240209
  Transmission Date: 20240410
  Serious: Yes (Hospitalization)
  Sender: FDA-Public Use
  Company Number: JP-ELI_LILLY_AND_COMPANY-JP202401012093

PATIENT
  Age: 65 Year
  Sex: Male

DRUGS (1)
  1. OMVOH [Suspect]
     Active Substance: MIRIKIZUMAB-MRKZ
     Indication: Product used for unknown indication
     Dosage: UNK
     Route: 041
     Dates: start: 20231121, end: 20240112

REACTIONS (1)
  - Infusion related hypersensitivity reaction [Recovering/Resolving]

NARRATIVE: CASE EVENT DATE: 20240112
